FAERS Safety Report 7845651-7 (Version None)
Quarter: 2011Q4

REPORT INFORMATION
  Report Type: 
  Country: None (occurrence: None)
  Receive Date: 20111025
  Receipt Date: 20111019
  Transmission Date: 20120403
  Serious: Yes (Death, Hospitalization, Other)
  Sender: FDA-Public Use
  Company Number: GB-TEVA-305864ISR

PATIENT
  Age: 47 Year
  Sex: Male

DRUGS (6)
  1. VASOPRESSIN [Suspect]
     Route: 042
  2. HYDROCORTISONE [Suspect]
  3. PROPOFOL [Suspect]
     Route: 042
  4. BENZODIAZEPINE [Suspect]
  5. MORPHINE [Suspect]
  6. PROTON PUMP INHIBITOR [Suspect]

REACTIONS (3)
  - RHABDOMYOLYSIS [None]
  - MULTI-ORGAN FAILURE [None]
  - RENAL FAILURE ACUTE [None]
